FAERS Safety Report 9519856 (Version 1)
Quarter: 2013Q1

REPORT INFORMATION
  Report Type: Spontaneous
  Country: US (occurrence: None)
  Receive Date: 20130305
  Receipt Date: 20130305
  Transmission Date: 20140127
  Serious: Yes (Hospitalization)
  Sender: FDA-Public Use
  Company Number: 163-21880-12012823

PATIENT
  Age: 59 Year
  Sex: Female

DRUGS (18)
  1. REVLIMID [Suspect]
     Indication: PLASMA CELL MYELOMA
     Dosage: 15 MG, DAILY X 14 DAYS, PO
     Route: 048
     Dates: start: 20111028, end: 201201
  2. AMLODIPINE (AMLODIPINE) (UNKNOWN) [Concomitant]
  3. CARVEDILOL (CARVEDILOL) (UNKNOWN) [Concomitant]
  4. CLONAZEPAM (CLONAZEPAM) (UNKNOWN) [Concomitant]
  5. FUROSEMIDE (FUROSEMIDE) (UNKNOWN) [Concomitant]
  6. KLOR-CON (POTASSIUM CHLORIDE) (UNKNOWN) [Concomitant]
  7. LIPITOR (ATORVASTATIN) (UNKNOWN) [Concomitant]
  8. LISINOPRIL (LISINOPRIL) (UNKNOWN) [Concomitant]
  9. OXYCODONE (OXYCODONE) (UNKNOWN) (OXYCODONE) [Concomitant]
  10. VITAMIN D (ERGOCALCIFEROL) (UNKNOWN) [Concomitant]
  11. NITROSTAT (GLYCERYL TRINITRATE) (UNKNOWN) [Concomitant]
  12. ACYCLOVIR (ACICLOVIR) (UNKNOWN) [Concomitant]
  13. VENTOLIN (SALBUTAMOL) (UNKNOWN) [Concomitant]
  14. SENNA/DOCUSATE (DOCUSATE) (UNKNOWN) [Concomitant]
  15. LIDOCAINE (LIDOCAINE) (UNKNOWN) [Concomitant]
  16. ASPIRIN (ACETYLSALICYLIC ACID) (UNKNOWN) (ACETYLSALICYLIC ACID) [Concomitant]
  17. DEXAMETHASONE (DEXAMETHASONE) (UNKNOWN) [Concomitant]
  18. VELCADE [Concomitant]

REACTIONS (1)
  - Thrombosis [None]
